FAERS Safety Report 14754341 (Version 5)
Quarter: 2018Q2

REPORT INFORMATION
  Report Type: Report from Study
  Country: None (occurrence: ES)
  Receive Date: 20180412
  Receipt Date: 20180523
  Transmission Date: 20180711
  Serious: Yes (Other)
  Sender: FDA-Public Use
  Company Number: ES-ABBVIE-18K-144-2319121-00

PATIENT
  Age: 69 Year
  Sex: Male
  Weight: 66 kg

DRUGS (3)
  1. DUODOPA [Suspect]
     Active Substance: CARBIDOPA\LEVODOPA
     Indication: PARKINSON^S DISEASE
     Route: 050
     Dates: start: 20180221, end: 2018
  2. DUODOPA [Suspect]
     Active Substance: CARBIDOPA\LEVODOPA
     Dosage: DECREASE DUODOPA CONTINUOUS DOSE 0.4ML
     Route: 050
     Dates: start: 2018, end: 2018
  3. DUODOPA [Suspect]
     Active Substance: CARBIDOPA\LEVODOPA
     Dosage: DECREASE DUODOPA CONTINUOUS DOSE ON 0.2ML/H
     Route: 050
     Dates: start: 2018

REACTIONS (6)
  - Daydreaming [Recovering/Resolving]
  - Obsessive-compulsive disorder [Recovered/Resolved]
  - Aggression [Recovered/Resolved]
  - Jealous delusion [Recovered/Resolved]
  - Impulsive behaviour [Recovered/Resolved]
  - Parkinson^s disease [Recovering/Resolving]

NARRATIVE: CASE EVENT DATE: 201804
